FAERS Safety Report 9785426 (Version 1)
Quarter: 2013Q4

REPORT INFORMATION
  Report Type: Spontaneous
  Country: US (occurrence: None)
  Receive Date: 20131223
  Receipt Date: 20131223
  Transmission Date: 20140711
  Serious: Yes (Other)
  Sender: FDA-Public Use
  Company Number: EUS-2013-00738

PATIENT
  Age: 13 Year
  Sex: Male

DRUGS (3)
  1. ASPARAGINASE (UNSPECIFIED)(ASPARAGINASE) [Suspect]
     Indication: ACUTE LYMPHOCYTIC LEUKAEMIA
     Dosage: (50002U/M2 QOD, 8 TIMES),INTRAVENOUS (NOT OTHERWISE SPECIFIED)
     Route: 042
  2. PREDNISONE [Suspect]
     Indication: ACUTE LYMPHOCYTIC LEUKAEMIA
     Dosage: 60 MG/M2 (60 MG/M2,FOR 28 DAYS)
  3. FUROSEMIDE [Concomitant]

REACTIONS (6)
  - Hyperglycaemia [None]
  - Metabolic acidosis [None]
  - Asthenia [None]
  - Depressed level of consciousness [None]
  - Polydipsia [None]
  - Mucosal dryness [None]
